FAERS Safety Report 5714617-5 (Version None)
Quarter: 2008Q2

REPORT INFORMATION
  Report Type: 
  Country: None (occurrence: None)
  Receive Date: 20080423
  Receipt Date: 20080414
  Transmission Date: 20081010
  Serious: Yes (Death)
  Sender: FDA-Public Use
  Company Number: B0510198A

PATIENT
  Sex: Female

DRUGS (5)
  1. TYVERB [Suspect]
     Indication: BREAST CANCER METASTATIC
     Dosage: 1250MG PER DAY
     Route: 048
     Dates: start: 20071001, end: 20080108
  2. FRAXIFORTE [Suspect]
     Indication: ANTICOAGULANT THERAPY
     Route: 065
     Dates: start: 20080104
  3. FRAGMIN [Suspect]
     Indication: THROMBOSIS
     Dosage: .6ML PER DAY
     Route: 058
     Dates: start: 20071021
  4. FRAXIPARINE [Suspect]
     Indication: THROMBOSIS
     Route: 065
     Dates: start: 20071001
  5. XELODA [Concomitant]
     Dates: end: 20071220

REACTIONS (7)
  - CEREBRAL HAEMORRHAGE [None]
  - DISEASE PROGRESSION [None]
  - HAEMORRHAGE [None]
  - METASTASES TO CENTRAL NERVOUS SYSTEM [None]
  - PERIPHERAL ISCHAEMIA [None]
  - RENAL FAILURE [None]
  - THROMBOSIS [None]
